FAERS Safety Report 7875737-2 (Version None)
Quarter: 2011Q4

REPORT INFORMATION
  Report Type: 
  Country: None (occurrence: None)
  Receive Date: 20111031
  Receipt Date: 20111021
  Transmission Date: 20120403
  Serious: Yes (Other)
  Sender: FDA-Public Use
  Company Number: US-ABBOTT-11P-163-0868100-00

PATIENT
  Age: 39 Year
  Sex: Male

DRUGS (2)
  1. ZYRTEC [Concomitant]
     Indication: HYPERSENSITIVITY
  2. HUMIRA [Suspect]
     Indication: PSORIASIS
     Route: 058
     Dates: start: 20070901

REACTIONS (6)
  - PURULENT DISCHARGE [None]
  - MALAISE [None]
  - RESPIRATORY TRACT INFECTION [None]
  - FATIGUE [None]
  - INFECTED DERMAL CYST [None]
  - AXILLARY MASS [None]
